FAERS Safety Report 8865186 (Version 1)
Quarter: 2012Q4

REPORT INFORMATION
  Report Type: 
  Country: US (occurrence: US)
  Receive Date: 20121024
  Receipt Date: 20121024
  Transmission Date: 20130627
  Serious: No
  Sender: FDA-Public Use
  Company Number: US-AMGEN-USASP2012001614

PATIENT
  Age: 79 Year
  Sex: Male

DRUGS (13)
  1. ENBREL [Suspect]
     Indication: PRODUCT USED FOR UNKNOWN INDICATION
     Dosage: 50 mg, qwk
     Route: 058
  2. ZOCOR [Concomitant]
     Dosage: 5 mg, UNK
  3. METHOTREXATE [Concomitant]
     Dosage: 2.5 mg, UNK
  4. LISINOPRIL [Concomitant]
     Dosage: 2.5 mg, UNK
  5. FOLIC ACID [Concomitant]
     Dosage: 1 mg, UNK
  6. GLUCOSAMINE [Concomitant]
     Dosage: 500 mg, UNK
  7. TOPROL [Concomitant]
     Dosage: 25 mg, UNK
  8. FLOMAX                             /00889901/ [Concomitant]
     Dosage: 0.4 mg, UNK
  9. LUTEIN                             /01638501/ [Concomitant]
     Dosage: 6 mg, UNK
  10. CALCIUM + VITAMIN D                /01483701/ [Concomitant]
     Dosage: UNK
  11. B COMPLEX                          /00212701/ [Concomitant]
     Dosage: UNK
  12. VITAMIN D /00107901/ [Concomitant]
     Dosage: 1000 IU, UNK
  13. SALMON OIL [Concomitant]
     Dosage: UNK

REACTIONS (7)
  - Swollen tongue [Unknown]
  - Lacrimation increased [Unknown]
  - Haemoglobin decreased [Unknown]
  - Hepatic enzyme increased [Unknown]
  - White blood cell count decreased [Unknown]
  - Red blood cell count decreased [Unknown]
  - Haematocrit decreased [Unknown]
